FAERS Safety Report 17847557 (Version 1)
Quarter: 2020Q2

REPORT INFORMATION
  Report Type: Spontaneous
  Country: DE (occurrence: DE)
  Receive Date: 20200601
  Receipt Date: 20200601
  Transmission Date: 20200714
  Serious: Yes (Other)
  Sender: FDA-Public Use
  Company Number: DE-AMGEN-DEUSP2020085229

PATIENT
  Age: 67 Year
  Sex: Female
  Weight: 74 kg

DRUGS (1)
  1. REPATHA [Suspect]
     Active Substance: EVOLOCUMAB
     Indication: TYPE IIA HYPERLIPIDAEMIA
     Dosage: 140 MILLIGRAM
     Route: 058
     Dates: start: 20191010, end: 20200512

REACTIONS (3)
  - Rash [Recovering/Resolving]
  - Dermatitis acneiform [Recovering/Resolving]
  - Furuncle [Recovering/Resolving]

NARRATIVE: CASE EVENT DATE: 20200101
